FAERS Safety Report 6802687-2 (Version None)
Quarter: 2010Q2

REPORT INFORMATION
  Report Type: 
  Country: None (occurrence: None)
  Receive Date: 20100628
  Receipt Date: 20100623
  Transmission Date: 20101027
  Serious: Yes (Other)
  Sender: FDA-Public Use
  Company Number: BR-B.I. PHARMACEUTICALS,INC./RIDGEFIELD-2010-BR-00828BR

PATIENT
  Sex: Female

DRUGS (2)
  1. BEROTEC [Suspect]
     Indication: DYSPNOEA
     Dosage: 0.5 MG
     Route: 055
     Dates: start: 20100611, end: 20100614
  2. ATROVENT [Suspect]
     Indication: DYSPNOEA
     Dosage: 0.125 MG
     Route: 055
     Dates: start: 20100611, end: 20100614

REACTIONS (6)
  - ANGINA PECTORIS [None]
  - ASTHENIA [None]
  - BLOOD PRESSURE INCREASED [None]
  - CARDIOMEGALY [None]
  - DYSPNOEA [None]
  - PALPITATIONS [None]
